FAERS Safety Report 8883085 (Version 1)
Quarter: 2012Q4

REPORT INFORMATION
  Report Type: 
  Country: NL (occurrence: NL)
  Receive Date: 20121102
  Receipt Date: 20121102
  Transmission Date: 20130627
  Serious: Yes (Hospitalization)
  Sender: FDA-Public Use
  Company Number: PHHY2012NL098805

PATIENT
  Age: 51 Year
  Sex: Female

DRUGS (3)
  1. ZOMETA [Suspect]
     Indication: BREAST CANCER METASTATIC
     Dosage: 4 mg/100 mL once per 28 days
  2. ZOMETA [Suspect]
     Dosage: 4 mg/100 mL once per 28 days
     Dates: start: 20100715
  3. ZOMETA [Suspect]
     Dosage: 4 mg/100 mL once per 28 days
     Dates: start: 20121004

REACTIONS (2)
  - Pneumonia [Not Recovered/Not Resolved]
  - Leukocytosis [Not Recovered/Not Resolved]
